FAERS Safety Report 18329371 (Version 2)
Quarter: 2020Q4

REPORT INFORMATION
  Report Type: Spontaneous
  Country: US (occurrence: US)
  Receive Date: 20200930
  Receipt Date: 20201125
  Transmission Date: 20210113
  Serious: No
  Sender: FDA-Public Use
  Company Number: US-ASTRAZENECA-2020SF23833

PATIENT
  Age: 28277 Day
  Sex: Female
  Weight: 56.2 kg

DRUGS (1)
  1. SYMBICORT [Suspect]
     Active Substance: BUDESONIDE\FORMOTEROL FUMARATE DIHYDRATE
     Indication: ASTHMA
     Dosage: 160-4.5 MCG 2 PUFFS TWICE DAILY, 120 DOSES
     Route: 055

REACTIONS (4)
  - Intentional dose omission [Unknown]
  - Product taste abnormal [Unknown]
  - Intentional device misuse [Not Recovered/Not Resolved]
  - Body height decreased [Unknown]

NARRATIVE: CASE EVENT DATE: 202009
